FAERS Safety Report 4673530-5 (Version None)
Quarter: 2005Q2

REPORT INFORMATION
  Report Type: 
  Country: None (occurrence: None)
  Receive Date: 20050523
  Receipt Date: 20050510
  Transmission Date: 20051028
  Serious: Yes (Death, Hospitalization)
  Sender: FDA-Public Use
  Company Number: 200421010BWH

PATIENT
  Sex: Male

DRUGS (1)
  1. TRASYLOL [Suspect]
     Indication: ENDOCARDITIS
     Dates: start: 20041101

REACTIONS (5)
  - ANAPHYLACTIC REACTION [None]
  - CARDIAC PROCEDURE COMPLICATION [None]
  - CIRCULATORY COLLAPSE [None]
  - SEPTIC EMBOLUS [None]
  - SEPTIC SHOCK [None]
